FAERS Safety Report 16756639 (Version 2)
Quarter: 2019Q3

REPORT INFORMATION
  Report Type: Report from Study
  Country: CA (occurrence: CA)
  Receive Date: 20190829
  Receipt Date: 20190919
  Transmission Date: 20191005
  Serious: Yes (Other)
  Sender: FDA-Public Use
  Company Number: PHHY2017CA036533

PATIENT
  Age: 42 Year
  Sex: Male

DRUGS (6)
  1. ENTRESTO [Suspect]
     Active Substance: SACUBITRIL\VALSARTAN
     Dosage: 2 DF (SACUBITRIL 49 MG, VALSARTAN 51 MG), UNK
     Route: 065
     Dates: start: 20170424
  2. ENTRESTO [Suspect]
     Active Substance: SACUBITRIL\VALSARTAN
     Indication: CARDIAC FAILURE
     Dosage: 2 DF (SACUBITRIL 24 MG, VALSARTAN 26 MG), UNK
     Route: 065
     Dates: start: 20161104, end: 20170228
  3. ENTRESTO [Suspect]
     Active Substance: SACUBITRIL\VALSARTAN
     Dosage: 1 DF (SACUBITRIL 24 MG, VALSARTAN 26 MG), UNK
     Route: 065
     Dates: end: 20170524
  4. ENTRESTO [Suspect]
     Active Substance: SACUBITRIL\VALSARTAN
     Dosage: 2 DF (SACUBITRIL 49 MG, VALSARTAN 51 MG), UNK
     Route: 065
     Dates: start: 20170525, end: 20190613
  5. ENTRESTO [Suspect]
     Active Substance: SACUBITRIL\VALSARTAN
     Dosage: 2 DF (SACUBITRIL 49 MG, VALSARTAN 51 MG), UNK
     Route: 065
     Dates: start: 20170301, end: 20170423
  6. ENTRESTO [Suspect]
     Active Substance: SACUBITRIL\VALSARTAN
     Dosage: 2 DF (SACUBITRIL 49 MG, VALSARTAN 51 MG), UNK
     Route: 065
     Dates: start: 20190614

REACTIONS (16)
  - Orthostatic hypotension [Recovered/Resolved]
  - Upper respiratory tract infection [Recovered/Resolved]
  - Cardiac failure congestive [Recovered/Resolved]
  - Non-cardiac chest pain [Not Recovered/Not Resolved]
  - Acute kidney injury [Recovered/Resolved]
  - Cardiac failure congestive [Recovered/Resolved]
  - Syncope [Not Recovered/Not Resolved]
  - Renal impairment [Recovered/Resolved]
  - Dizziness postural [Not Recovered/Not Resolved]
  - Dizziness [Recovered/Resolved]
  - Cardiac failure chronic [Recovered/Resolved]
  - Acute kidney injury [Recovered/Resolved]
  - Anaemia [Recovered/Resolved]
  - Acute kidney injury [Recovered/Resolved]
  - Hypoglycaemia [Recovered/Resolved]
  - Cough [Recovered/Resolved]

NARRATIVE: CASE EVENT DATE: 20161213
